FAERS Safety Report 23804777 (Version 1)
Quarter: 2024Q2

REPORT INFORMATION
  Report Type: Spontaneous
  Country: GB (occurrence: GB)
  Receive Date: 20240501
  Receipt Date: 20240501
  Transmission Date: 20240715
  Serious: Yes (Other)
  Sender: FDA-Public Use
  Company Number: GB-ZAMBON-202401191GBR

PATIENT
  Sex: Female

DRUGS (2)
  1. XADAGO [Suspect]
     Active Substance: SAFINAMIDE MESYLATE
     Indication: Product used for unknown indication
  2. XADAGO [Suspect]
     Active Substance: SAFINAMIDE MESYLATE

REACTIONS (3)
  - Serotonin syndrome [Recovered/Resolved]
  - Malaise [Unknown]
  - Anxiety [Unknown]
